FAERS Safety Report 7817984-1 (Version None)
Quarter: 2011Q4

REPORT INFORMATION
  Report Type: 
  Country: None (occurrence: None)
  Receive Date: 20111017
  Receipt Date: 20111014
  Transmission Date: 20120403
  Serious: No
  Sender: FDA-Public Use
  Company Number: DE-GLAXOSMITHKLINE-D0072486A

PATIENT
  Sex: Male
  Weight: 75 kg

DRUGS (3)
  1. KEPPRA [Concomitant]
     Indication: TEMPORAL LOBE EPILEPSY
     Dosage: 3.5G PER DAY
     Route: 048
  2. TROBALT [Suspect]
     Indication: TEMPORAL LOBE EPILEPSY
     Dosage: 50MG THREE TIMES PER DAY
     Route: 048
     Dates: start: 20110608, end: 20110614
  3. LYRICA [Concomitant]
     Indication: TEMPORAL LOBE EPILEPSY
     Dosage: 75MG PER DAY
     Route: 048

REACTIONS (2)
  - URINARY RETENTION [None]
  - MICTURITION DISORDER [None]
